FAERS Safety Report 6158389-1 (Version None)
Quarter: 2009Q2

REPORT INFORMATION
  Report Type: 
  Country: None (occurrence: None)
  Receive Date: 20090417
  Receipt Date: 20070905
  Transmission Date: 20091009
  Serious: Yes (Death, Hospitalization)
  Sender: FDA-Public Use
  Company Number: US-ASTRAZENECA-2008UW03923

PATIENT
  Age: 23942 Day
  Sex: Male
  Weight: 82.6 kg

DRUGS (16)
  1. SEROQUEL [Suspect]
     Dosage: 50-100MG
     Route: 048
     Dates: start: 20060120
  2. RISPERDAL [Concomitant]
  3. LASIX [Concomitant]
  4. KEPPRA [Concomitant]
  5. ZOLOFT [Concomitant]
  6. ASPIRIN [Concomitant]
  7. LIPITOR [Concomitant]
  8. NIASPAN [Concomitant]
  9. ATIVAN [Concomitant]
  10. NOVOLOG [Concomitant]
  11. PROVENTIL [Concomitant]
  12. ATROVENT [Concomitant]
  13. LOPRESSOR [Concomitant]
  14. LOVENOX [Concomitant]
  15. VASOTEC [Concomitant]
  16. DILANTIN [Concomitant]

REACTIONS (21)
  - AGGRESSION [None]
  - AGITATION [None]
  - ALCOHOLISM [None]
  - APHASIA [None]
  - CARDIO-RESPIRATORY ARREST [None]
  - CONCUSSION [None]
  - DEHYDRATION [None]
  - DEPRESSION [None]
  - DISORIENTATION [None]
  - HYPERTENSION [None]
  - HYPOTENSION [None]
  - LETHARGY [None]
  - MEMORY IMPAIRMENT [None]
  - MENTAL DISORDER DUE TO A GENERAL MEDICAL CONDITION [None]
  - MENTAL STATUS CHANGES [None]
  - MULTI-ORGAN FAILURE [None]
  - OEDEMA PERIPHERAL [None]
  - PANCREATITIS [None]
  - POST-TRAUMATIC EPILEPSY [None]
  - RESPIRATORY FAILURE [None]
  - URINARY INCONTINENCE [None]
